FAERS Safety Report 23749254 (Version 1)
Quarter: 2024Q2

REPORT INFORMATION
  Report Type: Spontaneous
  Country: US (occurrence: None)
  Receive Date: 20240416
  Receipt Date: 20240416
  Transmission Date: 20240716
  Serious: Yes (Hospitalization)
  Sender: FDA-Public Use
  Company Number: 2024A089648

PATIENT

DRUGS (4)
  1. FARXIGA [Suspect]
     Active Substance: DAPAGLIFLOZIN PROPANEDIOL
     Route: 048
  2. VYNDAQEL [Suspect]
     Active Substance: TAFAMIDIS MEGLUMINE
     Route: 048
     Dates: start: 20240326
  3. VYNDAMAX [Suspect]
     Active Substance: TAFAMIDIS
     Route: 048
  4. TORSEMIDE [Concomitant]
     Active Substance: TORSEMIDE

REACTIONS (5)
  - Atrial fibrillation [Unknown]
  - Urinary retention [Unknown]
  - Inguinal hernia [Unknown]
  - Cardiac failure congestive [Unknown]
  - Renal impairment [Unknown]
